FAERS Safety Report 7801565-X (Version None)
Quarter: 2011Q4

REPORT INFORMATION
  Report Type: 
  Country: None (occurrence: None)
  Receive Date: 20111007
  Receipt Date: 20111003
  Transmission Date: 20120403
  Serious: Yes (Death, Hospitalization)
  Sender: FDA-Public Use
  Company Number: US-AMGEN-USASP2011048414

PATIENT
  Sex: Male
  Weight: 69.841 kg

DRUGS (7)
  1. NPLATE [Suspect]
     Indication: THROMBOCYTOPENIA
     Dosage: 3.50 MUG/KG, UNK
     Route: 058
     Dates: start: 20110311, end: 20110707
  2. IRINOTECAN HYDROCHLORIDE [Concomitant]
     Indication: COLON CANCER METASTATIC
     Dosage: 200 MG, Q2WK
     Route: 042
     Dates: start: 20110201, end: 20110701
  3. NPLATE [Suspect]
     Indication: IDIOPATHIC THROMBOCYTOPENIC PURPURA
  4. XELODA [Concomitant]
     Indication: COLON CANCER METASTATIC
     Dosage: UNK
     Dates: start: 20070601, end: 20110501
  5. AVASTIN [Concomitant]
     Indication: COLON CANCER METASTATIC
     Dosage: 730 MG, Q2WK
     Route: 042
     Dates: start: 20091201, end: 20110701
  6. ZOMETA [Concomitant]
     Indication: METASTASES TO BONE
     Dosage: 4 MG, Q4WK
     Route: 042
     Dates: start: 20091215, end: 20110501
  7. ERBITUX [Concomitant]
     Indication: COLON CANCER METASTATIC
     Dosage: 900 MG, QWK
     Route: 042
     Dates: start: 20110201, end: 20110701

REACTIONS (5)
  - ASCITES [None]
  - HYPOTENSION [None]
  - COLON CANCER METASTATIC [None]
  - RENAL FAILURE [None]
  - RESPIRATORY FAILURE [None]
